FAERS Safety Report 4615046-8 (Version None)
Quarter: 2005Q1

REPORT INFORMATION
  Report Type: 
  Country: None (occurrence: None)
  Receive Date: 20050322
  Receipt Date: 20050307
  Transmission Date: 20050727
  Serious: Yes (Hospitalization)
  Sender: FDA-Public Use
  Company Number: US-GLAXOSMITHKLINE-A0548738A

PATIENT
  Age: 59 Year
  Sex: Male
  Weight: 81.8 kg

DRUGS (6)
  1. NICORETTE [Suspect]
     Indication: SMOKING CESSATION THERAPY
     Dosage: 2MG SIX TIMES PER DAY
     Route: 002
     Dates: start: 20041001
  2. PLAQUENIL [Concomitant]
     Indication: ILL-DEFINED DISORDER
  3. OXYCONTIN [Concomitant]
     Indication: ILL-DEFINED DISORDER
  4. SOMA [Concomitant]
     Indication: ILL-DEFINED DISORDER
  5. NEURONTIN [Concomitant]
     Indication: ILL-DEFINED DISORDER
  6. PAXIL [Concomitant]
     Indication: ILL-DEFINED DISORDER

REACTIONS (3)
  - CORONARY ARTERY OCCLUSION [None]
  - DRUG INEFFECTIVE [None]
  - MYOCARDIAL INFARCTION [None]
